FAERS Safety Report 5102154-0 (Version None)
Quarter: 2006Q3

REPORT INFORMATION
  Report Type: 
  Country: None (occurrence: None)
  Receive Date: 20060912
  Receipt Date: 20060905
  Transmission Date: 20061208
  Serious: Yes (Other)
  Sender: FDA-Public Use
  Company Number: US-SOLVAY-00206002931

PATIENT
  Sex: Female

DRUGS (1)
  1. PROMETRIUM [Suspect]
     Indication: ILL-DEFINED DISORDER
     Dosage: DAILY DOSE:  ONE DOSE
     Route: 048
     Dates: start: 20060201, end: 20060201

REACTIONS (4)
  - ABORTION SPONTANEOUS [None]
  - DIARRHOEA [None]
  - STOMACH DISCOMFORT [None]
  - VOMITING [None]
